FAERS Safety Report 18112987 (Version 1)
Quarter: 2020Q3

REPORT INFORMATION
  Report Type: Report from Study
  Country: CA (occurrence: CA)
  Receive Date: 20200805
  Receipt Date: 20200805
  Transmission Date: 20201103
  Serious: Yes (Other)
  Sender: FDA-Public Use
  Company Number: CA-ACCORD-193765

PATIENT
  Age: 63 Year
  Sex: Male
  Weight: 136 kg

DRUGS (11)
  1. METHOTREXATE. [Suspect]
     Active Substance: METHOTREXATE
     Indication: PRODUCT USED FOR UNKNOWN INDICATION
     Route: 065
  2. RITUXIMAB. [Suspect]
     Active Substance: RITUXIMAB
     Indication: RHEUMATOID ARTHRITIS
     Route: 042
  3. PARACETAMOL [Concomitant]
     Active Substance: ACETAMINOPHEN
     Indication: PREMEDICATION
     Route: 048
  4. RAMIPRIL. [Concomitant]
     Active Substance: RAMIPRIL
  5. DIPHENHYDRAMINE. [Concomitant]
     Active Substance: DIPHENHYDRAMINE
     Indication: PREMEDICATION
     Route: 048
  6. METHYLPREDNISOLONE. [Concomitant]
     Active Substance: METHYLPREDNISOLONE
     Indication: PREMEDICATION
     Route: 042
  7. PREDNISONE. [Concomitant]
     Active Substance: PREDNISONE
  8. SPIRIVA [Concomitant]
     Active Substance: TIOTROPIUM BROMIDE MONOHYDRATE
  9. ADVAIR HFA [Concomitant]
     Active Substance: FLUTICASONE PROPIONATE\SALMETEROL XINAFOATE
     Indication: PREMEDICATION
     Route: 048
  10. SULFASALAZINE. [Concomitant]
     Active Substance: SULFASALAZINE
  11. TYLENOL [Concomitant]
     Active Substance: ACETAMINOPHEN

REACTIONS (5)
  - Angina pectoris [Unknown]
  - Blood pressure increased [Unknown]
  - Respiratory disorder [Unknown]
  - Infusion related reaction [Unknown]
  - Oxygen saturation decreased [Unknown]
